FAERS Safety Report 4343656-4 (Version None)
Quarter: 2004Q2

REPORT INFORMATION
  Report Type: 
  Country: None (occurrence: None)
  Receive Date: 20040419
  Receipt Date: 20040409
  Transmission Date: 20050107
  Serious: Yes (Death)
  Sender: FDA-Public Use
  Company Number: 2004AP02157

PATIENT
  Age: 30 Year
  Sex: Female
  Weight: 76 kg

DRUGS (1)
  1. MARCAINE [Suspect]
     Indication: SPINAL ANAESTHESIA
     Dosage: 2 ML IT
     Route: 038
     Dates: start: 20040330, end: 20040330

REACTIONS (4)
  - CARDIAC ARREST [None]
  - CIRCULATORY COLLAPSE [None]
  - DYSPNOEA [None]
  - HYPOXIA [None]
